FAERS Safety Report 15251911 (Version 3)
Quarter: 2018Q4

REPORT INFORMATION
  Report Type: Spontaneous
  Country: JP (occurrence: JP)
  Receive Date: 20180807
  Receipt Date: 20181129
  Transmission Date: 20190204
  Serious: Yes (Other)
  Sender: FDA-Public Use
  Company Number: JP-PFIZER INC-2018312473

PATIENT
  Age: 70 Year
  Sex: Male

DRUGS (4)
  1. ADALAT [Suspect]
     Active Substance: NIFEDIPINE
  2. LASIX [Suspect]
     Active Substance: FUROSEMIDE
     Dosage: 40 MG, UNK
  3. THYRADIN S [Suspect]
     Active Substance: LEVOTHYROXINE SODIUM
     Dosage: 50 MG, UNK
  4. AZULFIDINE EN-TABS [Suspect]
     Active Substance: SULFASALAZINE
     Dosage: 500 MG, 2X/DAY (IN THE MORNING , AT NIGHT)
     Route: 048

REACTIONS (1)
  - Renal impairment [Recovering/Resolving]
